FAERS Safety Report 9045795 (Version 1)
Quarter: 2013Q1

REPORT INFORMATION
  Report Type: Report from Study
  Country: US (occurrence: US)
  Receive Date: 20130201
  Receipt Date: 20130201
  Transmission Date: 20140127
  Serious: No
  Sender: FDA-Public Use
  Company Number: US-ABBOTT-12P-163-1017750-00

PATIENT
  Age: 44 Year
  Sex: Male

DRUGS (6)
  1. HUMIRA [Suspect]
     Indication: CROHN^S DISEASE
     Dates: start: 20120813
  2. DIOVAN HCT [Concomitant]
     Indication: PRODUCT USED FOR UNKNOWN INDICATION
  3. NORVASC [Concomitant]
     Indication: BLOOD PRESSURE INCREASED
  4. UNKNOWN MEDICATION [Concomitant]
     Indication: BLOOD PRESSURE INCREASED
  5. SIMVASTATIN [Concomitant]
     Indication: BLOOD CHOLESTEROL INCREASED
  6. DEXILANT [Concomitant]
     Indication: OESOPHAGITIS

REACTIONS (3)
  - Swelling [Not Recovered/Not Resolved]
  - Stress [Unknown]
  - Headache [Unknown]
